FAERS Safety Report 18365988 (Version 4)
Quarter: 2020Q4

REPORT INFORMATION
  Report Type: Spontaneous
  Country: US (occurrence: US)
  Receive Date: 20201009
  Receipt Date: 20201113
  Transmission Date: 20210114
  Serious: No
  Sender: FDA-Public Use
  Company Number: US-PFIZER INC-2020310653

PATIENT
  Age: 71 Year
  Sex: Female

DRUGS (2)
  1. GENOTROPIN [Suspect]
     Active Substance: SOMATROPIN
     Dosage: 0.4 MG, DAILY
  2. GENOTROPIN [Suspect]
     Active Substance: SOMATROPIN
     Dosage: 4 MG, DAILY

REACTIONS (5)
  - Drug dose omission by device [Unknown]
  - Accidental exposure to product [Unknown]
  - Product prescribing error [Unknown]
  - Exposure via skin contact [Unknown]
  - Device issue [Unknown]
